FAERS Safety Report 21021779 (Version 1)
Quarter: 2022Q2

REPORT INFORMATION
  Report Type: Spontaneous
  Country: LT (occurrence: LT)
  Receive Date: 20220629
  Receipt Date: 20220629
  Transmission Date: 20220721
  Serious: Yes (Other)
  Sender: FDA-Public Use
  Company Number: LT-MSNLABS-2022MSNLIT00726

PATIENT

DRUGS (5)
  1. MOXIFLOXACIN HYDROCHLORIDE [Suspect]
     Active Substance: MOXIFLOXACIN HYDROCHLORIDE
     Indication: Pulmonary tuberculosis
     Route: 065
  2. KANAMYCIN [Suspect]
     Active Substance: KANAMYCIN A SULFATE
     Indication: Pulmonary tuberculosis
     Route: 065
  3. CYCLOSERINE [Suspect]
     Active Substance: CYCLOSERINE
     Indication: Pulmonary tuberculosis
     Route: 065
  4. PROTIONAMIDE [Suspect]
     Active Substance: PROTIONAMIDE
     Indication: Pulmonary tuberculosis
     Route: 065
  5. PARA-AMINOSALICYLIC ACID [Suspect]
     Active Substance: AMINOSALICYLIC ACID
     Indication: Pulmonary tuberculosis
     Route: 065

REACTIONS (1)
  - Drug reaction with eosinophilia and systemic symptoms [Recovered/Resolved]
